FAERS Safety Report 6517582-6 (Version None)
Quarter: 2009Q4

REPORT INFORMATION
  Report Type: 
  Country: None (occurrence: None)
  Receive Date: 20091224
  Receipt Date: 20091211
  Transmission Date: 20100525
  Serious: Yes (Death, Hospitalization, Other)
  Sender: FDA-Public Use
  Company Number: PHHY2009JP52968

PATIENT
  Age: 67 Year
  Sex: Male
  Weight: 70.5 kg

DRUGS (3)
  1. VOLTAREN [Suspect]
     Indication: BACK PAIN
     Dosage: 25 MG, QD
     Route: 054
  2. ATROVENT [Concomitant]
     Dosage: 20 UG 4 TIMES A DAY
  3. FLUNASE [Concomitant]
     Dosage: ONE INHALATION OF 200 ?G VIA DISKUS TWO TIMES A DAY

REACTIONS (19)
  - ASPERGILLOSIS [None]
  - ASPIRATION BONE MARROW [None]
  - BRONCHOPULMONARY ASPERGILLOSIS [None]
  - CHEST X-RAY ABNORMAL [None]
  - DEPRESSED LEVEL OF CONSCIOUSNESS [None]
  - EPISTAXIS [None]
  - HAEMOPTYSIS [None]
  - HEART RATE INCREASED [None]
  - IDIOPATHIC THROMBOCYTOPENIC PURPURA [None]
  - LUNG INFILTRATION [None]
  - LUNG NEOPLASM [None]
  - MEGAKARYOCYTES INCREASED [None]
  - MOUTH HAEMORRHAGE [None]
  - MULTI-ORGAN FAILURE [None]
  - PULMONARY INFARCTION [None]
  - PURPURA [None]
  - RALES [None]
  - RENAL IMPAIRMENT [None]
  - RESPIRATORY RATE INCREASED [None]
